FAERS Safety Report 6417677-1 (Version None)
Quarter: 2009Q4

REPORT INFORMATION
  Report Type: 
  Country: None (occurrence: None)
  Receive Date: 20091028
  Receipt Date: 20091014
  Transmission Date: 20100525
  Serious: Yes (Disabling, Other)
  Sender: FDA-Public Use
  Company Number: PHEH2008US08146

PATIENT
  Sex: Female
  Weight: 74.83 kg

DRUGS (7)
  1. AREDIA [Suspect]
  2. ZOMETA [Suspect]
  3. TAMOXIFEN CITRATE [Concomitant]
  4. FASLODEX [Concomitant]
  5. TAXOTERE [Concomitant]
     Dosage: UNK
  6. RADIATION TREATMENT [Concomitant]
  7. ARIMIDEX [Concomitant]

REACTIONS (25)
  - ANAEMIA [None]
  - ANHEDONIA [None]
  - ANXIETY [None]
  - AORTIC ARTERIOSCLEROSIS [None]
  - BONE NEOPLASM MALIGNANT [None]
  - BREAST CANCER METASTATIC [None]
  - DISABILITY [None]
  - GENERAL PHYSICAL HEALTH DETERIORATION [None]
  - HEART RATE IRREGULAR [None]
  - HYPOAESTHESIA FACIAL [None]
  - INJURY [None]
  - LUMBAR RADICULOPATHY [None]
  - METASTASES TO LIVER [None]
  - MITRAL VALVE DISEASE [None]
  - MUSCULOSKELETAL CHEST PAIN [None]
  - MYELODYSPLASTIC SYNDROME [None]
  - OSTEOARTHRITIS [None]
  - OSTEONECROSIS [None]
  - PAIN [None]
  - RENAL FAILURE CHRONIC [None]
  - RIB FRACTURE [None]
  - SINUSITIS [None]
  - TOOTH EXTRACTION [None]
  - TRANSIENT ISCHAEMIC ATTACK [None]
  - WALKING AID USER [None]
